FAERS Safety Report 7961389-X (Version None)
Quarter: 2011Q4

REPORT INFORMATION
  Report Type: 
  Country: None (occurrence: None)
  Receive Date: 20111121
  Receipt Date: 20110930
  Transmission Date: 20120403
  Serious: No
  Sender: FDA-Public Use
  Company Number: 1000024371

PATIENT
  Age: 57 Year
  Sex: Female
  Weight: 45.4 kg

DRUGS (22)
  1. VIIBRYD [Suspect]
     Indication: ANXIETY
     Dosage: 10;20 MG (10;20 MG, 1 IN 1 D), ORAL
     Route: 048
     Dates: start: 20110101, end: 20110101
  2. VIIBRYD [Suspect]
     Indication: MAJOR DEPRESSION
     Dosage: 10;20 MG (10;20 MG, 1 IN 1 D), ORAL
     Route: 048
     Dates: start: 20110101, end: 20110101
  3. VIIBRYD [Suspect]
     Indication: ANXIETY
     Dosage: 10;20 MG (10;20 MG, 1 IN 1 D), ORAL
     Route: 048
     Dates: start: 20110801, end: 20110101
  4. VIIBRYD [Suspect]
     Indication: MAJOR DEPRESSION
     Dosage: 10;20 MG (10;20 MG, 1 IN 1 D), ORAL
     Route: 048
     Dates: start: 20110801, end: 20110101
  5. PROZAC [Suspect]
     Indication: ANXIETY
     Dosage: 80;60 40 MG (80;60; 40 MG, 1 IN 1 D)
     Dates: start: 19910101, end: 20110101
  6. PROZAC [Suspect]
     Indication: MAJOR DEPRESSION
     Dosage: 80;60 40 MG (80;60; 40 MG, 1 IN 1 D)
     Dates: start: 19910101, end: 20110101
  7. PROZAC [Suspect]
     Indication: ANXIETY
     Dosage: 80;60 40 MG (80;60; 40 MG, 1 IN 1 D)
     Dates: start: 20110101
  8. PROZAC [Suspect]
     Indication: MAJOR DEPRESSION
     Dosage: 80;60 40 MG (80;60; 40 MG, 1 IN 1 D)
     Dates: start: 20110101
  9. PROZAC [Suspect]
     Indication: ANXIETY
     Dosage: 80;60 40 MG (80;60; 40 MG, 1 IN 1 D)
     Dates: start: 20110101, end: 20110101
  10. PROZAC [Suspect]
     Indication: MAJOR DEPRESSION
     Dosage: 80;60 40 MG (80;60; 40 MG, 1 IN 1 D)
     Dates: start: 20110101, end: 20110101
  11. COMPAZINE (PROCHLORPERAZINE) (PROCHLORPERAZINE) [Concomitant]
  12. AMBIEN [Suspect]
     Indication: INSOMNIA
     Dosage: PRN
  13. METAMUCIL (PSYLIUM) (PSYLIUM) [Concomitant]
  14. KLONOPIN [Suspect]
     Dosage: 1.5 (1.5 MG, 1 IN 1 D)
  15. EFFEXOR [Suspect]
     Indication: ANXIETY
     Dosage: 300 MG (300 MG, 1 IN 1 D)
     Dates: start: 19910101
  16. EFFEXOR [Suspect]
     Indication: MAJOR DEPRESSION
     Dosage: 300 MG (300 MG, 1 IN 1 D)
     Dates: start: 19910101
  17. SYNTHROID (LEVOTHYROXINE SODIUM) (LEVOTHYROXINE SODIUM) [Concomitant]
  18. VIIBRYD [Suspect]
     Indication: ANXIETY
     Dosage: 40; 30 MG (40;30  MG, 1 IN 1 D), ORAL
     Route: 048
     Dates: start: 20110101, end: 20110101
  19. VIIBRYD [Suspect]
     Indication: MAJOR DEPRESSION
     Dosage: 40; 30 MG (40;30  MG, 1 IN 1 D), ORAL
     Route: 048
     Dates: start: 20110101, end: 20110101
  20. VIIBRYD [Suspect]
     Indication: ANXIETY
     Dosage: 40; 30 MG (40;30  MG, 1 IN 1 D), ORAL
     Route: 048
     Dates: start: 20110101
  21. VIIBRYD [Suspect]
     Indication: MAJOR DEPRESSION
     Dosage: 40; 30 MG (40;30  MG, 1 IN 1 D), ORAL
     Route: 048
     Dates: start: 20110101
  22. LACTULOSE (LACTULOSE) (SYRUP) [Concomitant]

REACTIONS (7)
  - OCULAR HYPERAEMIA [None]
  - WEIGHT INCREASED [None]
  - DRY MOUTH [None]
  - ARTHRALGIA [None]
  - UNEVALUABLE EVENT [None]
  - MYDRIASIS [None]
  - LIGAMENT SPRAIN [None]
